FAERS Safety Report 7495395-9 (Version None)
Quarter: 2011Q2

REPORT INFORMATION
  Report Type: 
  Country: None (occurrence: None)
  Receive Date: 20110513
  Receipt Date: 20110502
  Transmission Date: 20111010
  Serious: Yes (Life-Threatening)
  Sender: FDA-Public Use
  Company Number: 1000020789

PATIENT
  Age: 43 Year
  Sex: Male

DRUGS (10)
  1. DEPAMIDE (VALPROMIDE) [Concomitant]
  2. KEPPRA (LEVETIRACETAM) (TABLETS) (LEVETIRACETAM) [Concomitant]
  3. OMIX LP (TAMSULOSIN HYDROCHLORIDE) (CAPSULES) [Concomitant]
  4. RIVOTRIL (CLONAZEPAM) [Concomitant]
  5. NOCTRAN (ACEPROMAZINE MALEATE, CLORAZEPATE DIPOTASSIUM) [Concomitant]
  6. OXAZEPAM [Concomitant]
  7. ESCITALOPRAM [Suspect]
     Indication: DEPRESSION
     Dosage: 20, 40 MG (20 MG, 1 IN 1 D), ORAL
     Route: 048
     Dates: end: 20110320
  8. ABILIFY [Suspect]
     Dosage: 30 MG (15 MG, 2 IN 1 D), ORAL
     Route: 048
  9. PHENOBARBITAL TAB [Suspect]
     Dosage: 100, 50 MG (100 MG, 1 IN 1 D), ORAL
     Route: 048
     Dates: end: 20110228
  10. PHENOBARBITAL TAB [Suspect]
     Dosage: 100, 50 MG (100 MG, 1 IN 1 D), ORAL
     Route: 048
     Dates: start: 20110301, end: 20110318

REACTIONS (16)
  - NEUROLEPTIC MALIGNANT SYNDROME [None]
  - HEPATIC FAILURE [None]
  - HEPATIC LESION [None]
  - MULTI-ORGAN FAILURE [None]
  - DRUG INTERACTION [None]
  - DISSEMINATED INTRAVASCULAR COAGULATION [None]
  - OVERDOSE [None]
  - NEUROPATHY PERIPHERAL [None]
  - COMA [None]
  - RHABDOMYOLYSIS [None]
  - POISONING DELIBERATE [None]
  - STATUS EPILEPTICUS [None]
  - PORTAL HYPERTENSION [None]
  - HEPATIC NEOPLASM [None]
  - HEPATIC CIRRHOSIS [None]
  - VARICES OESOPHAGEAL [None]
